FAERS Safety Report 10149929 (Version 1)
Quarter: 2014Q2

REPORT INFORMATION
  Report Type: Spontaneous
  Country: US (occurrence: None)
  Receive Date: 20140501
  Receipt Date: 20140501
  Transmission Date: 20141212
  Serious: Yes (Other)
  Sender: FDA-Public Use
  Company Number: None

PATIENT
  Age: 43 Year
  Sex: Female
  Weight: 72.58 kg

DRUGS (2)
  1. QVAR [Suspect]
     Indication: BRONCHITIS
     Dosage: 1 PUFF TWICE DAILY INHALATION
     Route: 055
     Dates: start: 20140318, end: 20140424
  2. QVAR [Suspect]
     Dosage: 1 PUFF TWICE DAILY INHALATION
     Route: 055
     Dates: start: 20140318, end: 20140424

REACTIONS (5)
  - Disorientation [None]
  - Syncope [None]
  - Vomiting [None]
  - Hypotension [None]
  - Orthostatic hypotension [None]
